FAERS Safety Report 12554717 (Version 1)
Quarter: 2016Q3

REPORT INFORMATION
  Report Type: Spontaneous
  Country: US (occurrence: US)
  Receive Date: 20160713
  Receipt Date: 20160713
  Transmission Date: 20161109
  Serious: No
  Sender: FDA-Public Use
  Company Number: US-009507513-1606USA014702

PATIENT
  Age: 67 Year
  Sex: Female

DRUGS (1)
  1. CANCIDAS [Suspect]
     Active Substance: CASPOFUNGIN ACETATE
     Dosage: UNK
     Route: 042
     Dates: start: 20160613

REACTIONS (2)
  - Product use issue [Unknown]
  - No adverse event [Unknown]

NARRATIVE: CASE EVENT DATE: 201606
